FAERS Safety Report 9120875 (Version 5)
Quarter: 2014Q1

REPORT INFORMATION
  Report Type: Spontaneous
  Country: IT (occurrence: IT)
  Receive Date: 20130226
  Receipt Date: 20140207
  Transmission Date: 20141002
  Serious: Yes (Death, Hospitalization)
  Sender: FDA-Public Use
  Company Number: IT-ROCHE-1195011

PATIENT
  Age: 44 Year
  Sex: Female
  Weight: 57 kg

DRUGS (3)
  1. XELODA [Suspect]
     Indication: METASTASES TO CENTRAL NERVOUS SYSTEM
     Route: 048
     Dates: start: 20130213, end: 20130220
  2. HERCEPTIN [Concomitant]
     Indication: METASTASES TO CENTRAL NERVOUS SYSTEM
     Route: 041
     Dates: start: 20060316, end: 20130213
  3. HERCEPTIN [Concomitant]
     Route: 042
     Dates: start: 20130213

REACTIONS (9)
  - Bone marrow failure [Fatal]
  - Skin toxicity [Fatal]
  - Mucosal inflammation [Unknown]
  - Diarrhoea [Unknown]
  - Leukopenia [Unknown]
  - Pyrexia [Unknown]
  - Erythema [Unknown]
  - Odynophagia [Unknown]
  - Palmar-plantar erythrodysaesthesia syndrome [Unknown]
